FAERS Safety Report 8383235-5 (Version None)
Quarter: 2012Q2

REPORT INFORMATION
  Report Type: 
  Country: None (occurrence: None)
  Receive Date: 20120524
  Receipt Date: 20120515
  Transmission Date: 20120825
  Serious: Yes (Other)
  Sender: FDA-Public Use
  Company Number: US-ASTRAZENECA-2012SE31508

PATIENT
  Age: 47 Year
  Sex: Female

DRUGS (1)
  1. NEXIUM [Suspect]
     Route: 048

REACTIONS (7)
  - ROAD TRAFFIC ACCIDENT [None]
  - JOINT DISLOCATION [None]
  - HEAD INJURY [None]
  - CERVICAL VERTEBRAL FRACTURE [None]
  - BACK INJURY [None]
  - FACIAL BONES FRACTURE [None]
  - MEMORY IMPAIRMENT [None]
